FAERS Safety Report 14939570 (Version 1)
Quarter: 2018Q2

REPORT INFORMATION
  Report Type: Spontaneous
  Country: US (occurrence: US)
  Receive Date: 20180525
  Receipt Date: 20180525
  Transmission Date: 20180711
  Serious: No
  Sender: FDA-Public Use
  Company Number: US-PFIZER INC-2018208498

PATIENT
  Age: 71 Year
  Sex: Female
  Weight: 68.93 kg

DRUGS (3)
  1. GABAPENTIN. [Suspect]
     Active Substance: GABAPENTIN
     Indication: INSOMNIA
  2. GABAPENTIN. [Suspect]
     Active Substance: GABAPENTIN
     Indication: PAIN IN EXTREMITY
     Dosage: 100 MG, 3X/DAY
     Route: 048
  3. GABAPENTIN. [Suspect]
     Active Substance: GABAPENTIN
     Indication: PERIPHERAL SENSORY NEUROPATHY
     Dosage: 600 MG, 3X/DAY (TAKEN AT 6,8 AND 10)
     Route: 048
     Dates: start: 2011

REACTIONS (3)
  - Drug ineffective for unapproved indication [Unknown]
  - Intentional product misuse [Unknown]
  - Weight increased [Unknown]
